FAERS Safety Report 5285065-X (Version None)
Quarter: 2007Q2

REPORT INFORMATION
  Report Type: 
  Country: None (occurrence: None)
  Receive Date: 20070403
  Receipt Date: 20070322
  Transmission Date: 20071010
  Serious: Yes (Death, Hospitalization)
  Sender: FDA-Public Use
  Company Number: FR-SANOFI-SYNTHELABO-A02200700874

PATIENT
  Age: 68 Year
  Sex: Female

DRUGS (12)
  1. NEORAL [Concomitant]
     Indication: PROPHYLAXIS AGAINST TRANSPLANT REJECTION
     Dosage: UNK
     Route: 065
     Dates: start: 20061004, end: 20061015
  2. TAHOR [Concomitant]
     Indication: DYSLIPIDAEMIA
     Dosage: UNK
     Route: 048
  3. TAHOR [Concomitant]
     Dosage: UNK
     Route: 048
  4. AMLOR [Concomitant]
     Indication: HYPERTENSION
     Dosage: UNK
     Route: 048
  5. HYPERIUM [Concomitant]
     Indication: HYPERTENSION
     Dosage: UNK
     Route: 048
  6. CELLCEPT [Concomitant]
     Indication: PROPHYLAXIS AGAINST TRANSPLANT REJECTION
     Dosage: UNK
     Route: 048
     Dates: start: 20060831
  7. KARDEGIC [Concomitant]
     Indication: CORONARY ARTERY DISEASE
     Dosage: UNK
     Route: 048
     Dates: start: 20060911
  8. KARDEGIC [Concomitant]
     Indication: STENT PLACEMENT
     Dosage: UNK
     Route: 048
     Dates: start: 20060911
  9. CORTANCYL [Concomitant]
     Indication: PROPHYLAXIS AGAINST TRANSPLANT REJECTION
     Dosage: UNK
     Route: 048
     Dates: start: 20060831
  10. PROGRAF [Suspect]
     Indication: PROPHYLAXIS AGAINST TRANSPLANT REJECTION
     Dosage: UNK
     Route: 048
     Dates: start: 20060831, end: 20061002
  11. PLAVIX [Suspect]
     Indication: CORONARY ARTERY DISEASE
     Dosage: UNK
     Route: 048
     Dates: start: 20060911, end: 20061010
  12. PLAVIX [Suspect]
     Indication: STENT PLACEMENT
     Dosage: UNK
     Route: 048
     Dates: start: 20060911, end: 20061010

REACTIONS (10)
  - ATRIAL FIBRILLATION [None]
  - CARDIAC ARREST [None]
  - CONFUSIONAL STATE [None]
  - DYSKINESIA [None]
  - HAEMOLYTIC URAEMIC SYNDROME [None]
  - HEPATIC NECROSIS [None]
  - HERPES SIMPLEX [None]
  - RENAL FAILURE ACUTE [None]
  - SHOCK [None]
  - THROMBOCYTOPENIA [None]
